FAERS Safety Report 6023716-2 (Version None)
Quarter: 2008Q4

REPORT INFORMATION
  Report Type: 
  Country: None (occurrence: None)
  Receive Date: 20081230
  Receipt Date: 20081222
  Transmission Date: 20090506
  Serious: Yes (Hospitalization)
  Sender: FDA-Public Use
  Company Number: FR-SANOFI-SYNTHELABO-A02200803815

PATIENT
  Sex: Female

DRUGS (12)
  1. STILNOX [Suspect]
     Indication: INSOMNIA
     Route: 048
     Dates: end: 20080601
  2. STILNOX [Suspect]
     Dosage: UNK
     Route: 048
     Dates: start: 20080610
  3. POLY-KARAYA [Concomitant]
     Indication: DRUG USE FOR UNKNOWN INDICATION
     Route: 048
  4. PROCTOLOG [Concomitant]
     Indication: DRUG USE FOR UNKNOWN INDICATION
     Route: 054
  5. TITANOREINE [Concomitant]
     Indication: DRUG USE FOR UNKNOWN INDICATION
     Dosage: UNK
     Route: 061
  6. DITROPAN [Concomitant]
     Indication: DRUG USE FOR UNKNOWN INDICATION
     Route: 048
  7. INIPOMP [Concomitant]
     Indication: DRUG USE FOR UNKNOWN INDICATION
     Route: 048
  8. TEMESTA [Suspect]
     Indication: ANXIETY
     Dosage: 1.5 MG
     Route: 048
     Dates: end: 20080601
  9. HALDOL [Suspect]
     Indication: DYSTHYMIC DISORDER
     Dosage: 15 GTT
     Route: 048
     Dates: start: 20080415, end: 20080601
  10. STABLON [Suspect]
     Indication: DEPRESSION
     Dosage: UNK
     Route: 048
     Dates: end: 20080414
  11. STABLON [Suspect]
     Dosage: 25 MG
     Route: 048
     Dates: start: 20080415, end: 20080620
  12. ATACAND [Suspect]
     Indication: HYPERTENSION
     Route: 048

REACTIONS (3)
  - FALL [None]
  - FEMORAL NECK FRACTURE [None]
  - FINE MOTOR DELAY [None]
